FAERS Safety Report 25879560 (Version 1)
Quarter: 2025Q4

REPORT INFORMATION
  Report Type: Spontaneous
  Country: US (occurrence: US)
  Receive Date: 20251003
  Receipt Date: 20251003
  Transmission Date: 20260118
  Serious: Yes (Hospitalization, Other)
  Sender: AMGEN
  Company Number: US-AMGEN-USASP2025195275

PATIENT
  Age: 10 Year
  Sex: Female

DRUGS (5)
  1. PREDNISONE [Suspect]
     Active Substance: PREDNISONE
     Indication: Oculocardiac reflex
     Dosage: 30 MILLIGRAM, BID
     Route: 048
  2. PREDNISONE [Suspect]
     Active Substance: PREDNISONE
     Indication: Orbital oedema
     Dosage: UNK, TAPER
     Route: 048
  3. ATROPINE [Concomitant]
     Active Substance: ATROPINE
     Route: 040
  4. GLYCOPYRROLATE [Concomitant]
     Active Substance: GLYCOPYRROLATE
  5. METHYLPREDNISOLONE [Concomitant]
     Active Substance: METHYLPREDNISOLONE
     Dosage: 30 MILLIGRAM, BID
     Route: 040

REACTIONS (6)
  - Antinuclear antibody positive [Unknown]
  - Blood immunoglobulin G increased [Unknown]
  - Double stranded DNA antibody positive [Unknown]
  - Crohn^s disease [Unknown]
  - Oculocardiac reflex [Unknown]
  - Off label use [Unknown]
